FAERS Safety Report 8879101 (Version 1)
Quarter: 2012Q4

REPORT INFORMATION
  Report Type: Spontaneous
  Country: US (occurrence: None)
  Receive Date: 20121031
  Receipt Date: 20121031
  Transmission Date: 20130627
  Serious: Yes (Hospitalization)
  Sender: FDA-Public Use
  Company Number: None

PATIENT
  Age: 72 Year
  Sex: Male

DRUGS (3)
  1. REVLIMID [Suspect]
     Indication: MULTIPLE MYELOMA
     Dosage: 5 mg, daily x 21/28 days, by mouth
     Route: 048
     Dates: start: 200802, end: 200905
  2. REVLIMID [Suspect]
     Indication: MULTIPLE MYELOMA
     Dates: start: 201002, end: 201004
  3. REVLIMID [Suspect]
     Indication: MULTIPLE MYELOMA
     Dates: start: 201110, end: 201203

REACTIONS (4)
  - Dyspnoea exertional [None]
  - Pancytopenia [None]
  - Cough [None]
  - Pneumonia [None]
